FAERS Safety Report 10976261 (Version 2)
Quarter: 2015Q2

REPORT INFORMATION
  Report Type: Spontaneous
  Country: US (occurrence: US)
  Receive Date: 20150401
  Receipt Date: 20150525
  Transmission Date: 20150821
  Serious: No
  Sender: FDA-Public Use
  Company Number: US-JNJFOC-20130100779

PATIENT
  Age: 58 Year
  Sex: Male

DRUGS (7)
  1. BENZTROPINE [Concomitant]
     Active Substance: BENZTROPINE
     Route: 048
  2. AMLODIPINE [Concomitant]
     Active Substance: AMLODIPINE BESYLATE
     Route: 048
  3. CHLORPROMAZINE [Concomitant]
     Active Substance: CHLORPROMAZINE
     Route: 048
  4. DUONEB [Concomitant]
     Active Substance: ALBUTEROL SULFATE\IPRATROPIUM BROMIDE
     Dosage: AS NEEDED
     Route: 065
  5. OMEPRAZOLE. [Concomitant]
     Active Substance: OMEPRAZOLE
     Route: 048
  6. RISPERDAL CONSTA [Suspect]
     Active Substance: RISPERIDONE
     Indication: SCHIZOPHRENIA
     Route: 030
     Dates: start: 20120707
  7. TRAMADOL [Concomitant]
     Active Substance: TRAMADOL
     Route: 048

REACTIONS (2)
  - Drug dose omission [Recovered/Resolved]
  - Syringe issue [Unknown]

NARRATIVE: CASE EVENT DATE: 20121218
